FAERS Safety Report 6811333-3 (Version None)
Quarter: 2010Q2

REPORT INFORMATION
  Report Type: 
  Country: None (occurrence: None)
  Receive Date: 20100630
  Receipt Date: 20100621
  Transmission Date: 20101027
  Serious: Yes (Hospitalization)
  Sender: FDA-Public Use
  Company Number: JP-MERCK-1004USA01283

PATIENT
  Age: 76 Year
  Sex: Male

DRUGS (9)
  1. JANUVIA [Suspect]
     Indication: TYPE 2 DIABETES MELLITUS
     Route: 048
     Dates: start: 20100312, end: 20100326
  2. ALOSITOL [Concomitant]
     Route: 065
  3. CETAPRIL [Concomitant]
     Route: 065
  4. LANDEL [Concomitant]
     Route: 065
  5. GASLON [Concomitant]
     Route: 065
     Dates: start: 20100312
  6. MICARDIS [Concomitant]
     Route: 065
     Dates: start: 20100312
  7. ACTOS [Concomitant]
     Route: 065
     Dates: start: 20100312
  8. KREMEZIN [Concomitant]
     Route: 065
     Dates: start: 20100312
  9. GLYCORAN [Concomitant]
     Route: 065
     Dates: start: 20100312

REACTIONS (1)
  - CEREBRAL INFARCTION [None]
